FAERS Safety Report 25527423 (Version 1)
Quarter: 2025Q3

REPORT INFORMATION
  Report Type: Spontaneous
  Country: US (occurrence: US)
  Receive Date: 20250708
  Receipt Date: 20250708
  Transmission Date: 20251020
  Serious: Yes (Hospitalization)
  Sender: GRIFOLS
  Company Number: US-IGSA-BIG0036008

PATIENT
  Age: 50 Year
  Sex: Female

DRUGS (35)
  1. GAMUNEX-C [Suspect]
     Active Substance: HUMAN IMMUNOGLOBULIN G
     Indication: Polyneuropathy
     Route: 065
  2. GAMUNEX-C [Suspect]
     Active Substance: HUMAN IMMUNOGLOBULIN G
     Indication: Sjogren^s syndrome
     Dosage: 150 GRAM, 50G DAILY FOR 3 DAYS Q.2WK.
     Route: 065
  3. GAMUNEX-C [Suspect]
     Active Substance: HUMAN IMMUNOGLOBULIN G
     Indication: Autoimmune disorder
     Route: 065
     Dates: start: 20250531, end: 20250531
  4. AJOVY [Concomitant]
     Active Substance: FREMANEZUMAB-VFRM
  5. ALBUTEROL SULFATE [Concomitant]
     Active Substance: ALBUTEROL SULFATE
  6. ATORVASTATIN [Concomitant]
     Active Substance: ATORVASTATIN
  7. BUDESONIDE\FORMOTEROL [Concomitant]
     Active Substance: BUDESONIDE\FORMOTEROL
  8. BUMEX [Concomitant]
     Active Substance: BUMETANIDE
  9. CITALOPRAM [Concomitant]
     Active Substance: CITALOPRAM
  10. DICYCLOMINE [Concomitant]
     Active Substance: DICYCLOMINE HYDROCHLORIDE
  11. CHOLECALCIFEROL [Concomitant]
     Active Substance: CHOLECALCIFEROL
  12. FAMOTIDINE [Concomitant]
     Active Substance: FAMOTIDINE
  13. FENOFIBRATE [Concomitant]
     Active Substance: FENOFIBRATE
  14. FLUTICASONE [Concomitant]
     Active Substance: FLUTICASONE
  15. GLIPIZIDE [Concomitant]
     Active Substance: GLIPIZIDE
  16. HYDROXYCHLOROQUINE [Concomitant]
     Active Substance: HYDROXYCHLOROQUINE
  17. HYDROXYZINE [Concomitant]
     Active Substance: HYDROXYZINE HYDROCHLORIDE
  18. IPRATROPIUM [Concomitant]
     Active Substance: IPRATROPIUM
  19. IVABRADINE [Concomitant]
     Active Substance: IVABRADINE
  20. LANTUS [Concomitant]
     Active Substance: INSULIN GLARGINE
  21. LEVOTHYROXINE [Concomitant]
     Active Substance: LEVOTHYROXINE
  22. MECLIZINE [Concomitant]
     Active Substance: MECLIZINE HYDROCHLORIDE
  23. METOPROLOL [Concomitant]
     Active Substance: METOPROLOL
  24. NURTEC ODT [Concomitant]
     Active Substance: RIMEGEPANT SULFATE
  25. OMEPRAZOLE [Concomitant]
     Active Substance: OMEPRAZOLE
  26. ONDANSETRON [Concomitant]
     Active Substance: ONDANSETRON
  27. PILOCARPINE [Concomitant]
     Active Substance: PILOCARPINE
  28. PREDNISONE [Concomitant]
     Active Substance: PREDNISONE
  29. PREGABALIN [Concomitant]
     Active Substance: PREGABALIN
  30. REPAGLINIDE [Concomitant]
     Active Substance: REPAGLINIDE
  31. ROPINIROLE [Concomitant]
     Active Substance: ROPINIROLE
  32. SPIRIVA [Concomitant]
     Active Substance: TIOTROPIUM BROMIDE MONOHYDRATE
  33. TRAMADOL [Concomitant]
     Active Substance: TRAMADOL
  34. TRESIBA [Concomitant]
     Active Substance: INSULIN DEGLUDEC
  35. XIFAXAN [Concomitant]
     Active Substance: RIFAXIMIN

REACTIONS (5)
  - Gingival pruritus [Recovered/Resolved]
  - Headache [Recovered/Resolved]
  - Nausea [Recovered/Resolved]
  - Vomiting [Recovered/Resolved]
  - Intentional dose omission [Recovered/Resolved]

NARRATIVE: CASE EVENT DATE: 20250531
